FAERS Safety Report 17949375 (Version 18)
Quarter: 2025Q4

REPORT INFORMATION
  Report Type: Report from Study
  Country: CA (occurrence: CA)
  Receive Date: 20200625
  Receipt Date: 20251030
  Transmission Date: 20260118
  Serious: Yes (Other)
  Sender: NOVARTIS
  Company Number: PHHY2017CA074709

PATIENT
  Age: 48 Year
  Sex: Female

DRUGS (7)
  1. SANDOSTATIN LAR DEPOT [Suspect]
     Active Substance: OCTREOTIDE ACETATE
     Indication: Carcinoid tumour
     Dosage: 30 MG, Q4W
     Route: 030
     Dates: start: 20170424
  2. SANDOSTATIN LAR DEPOT [Suspect]
     Active Substance: OCTREOTIDE ACETATE
     Dosage: 30 MG, Q4W
     Route: 030
  3. SANDOSTATIN LAR DEPOT [Suspect]
     Active Substance: OCTREOTIDE ACETATE
     Dosage: UNK
     Route: 065
     Dates: start: 20250529
  4. SANDOSTATIN LAR DEPOT [Suspect]
     Active Substance: OCTREOTIDE ACETATE
     Dosage: 30 MG, Q4W
     Route: 030
  5. ZOFRAN [Suspect]
     Active Substance: ONDANSETRON HYDROCHLORIDE
     Indication: Product used for unknown indication
     Dosage: UNK
     Route: 065
  6. FENTANYL [Suspect]
     Active Substance: FENTANYL
     Indication: Product used for unknown indication
     Dosage: UNK
     Route: 065
  7. VERSED [Suspect]
     Active Substance: MIDAZOLAM HYDROCHLORIDE
     Indication: Product used for unknown indication
     Dosage: UNK
     Route: 065

REACTIONS (52)
  - Carcinoid tumour [Unknown]
  - Malignant neoplasm progression [Unknown]
  - Metastases to liver [Unknown]
  - Metastasis [Unknown]
  - Haematochezia [Unknown]
  - Nodule [Unknown]
  - Nasal congestion [Not Recovered/Not Resolved]
  - Pollakiuria [Unknown]
  - Induration [Unknown]
  - Increased appetite [Unknown]
  - Malaise [Unknown]
  - Memory impairment [Unknown]
  - Movement disorder [Unknown]
  - Musculoskeletal stiffness [Unknown]
  - Blood pressure systolic decreased [Unknown]
  - Drug intolerance [Unknown]
  - Arthralgia [Unknown]
  - Feeling abnormal [Unknown]
  - Influenza like illness [Recovered/Resolved]
  - Myalgia [Recovered/Resolved]
  - Oropharyngeal pain [Recovered/Resolved]
  - Headache [Recovered/Resolved]
  - Nausea [Recovered/Resolved]
  - Abdominal pain upper [Recovered/Resolved]
  - White blood cell count decreased [Unknown]
  - Eczema eyelids [Unknown]
  - Dizziness [Unknown]
  - Fatigue [Unknown]
  - Mass [Unknown]
  - Hot flush [Unknown]
  - COVID-19 [Recovered/Resolved]
  - Bacterial infection [Unknown]
  - Hypoaesthesia [Unknown]
  - Diarrhoea [Recovered/Resolved]
  - Faeces discoloured [Unknown]
  - Flatulence [Unknown]
  - Abdominal pain lower [Unknown]
  - Product storage error [Unknown]
  - Pancreatic enzymes abnormal [Unknown]
  - Gait disturbance [Unknown]
  - Diarrhoea [Unknown]
  - Abdominal distension [Unknown]
  - Abdominal pain [Unknown]
  - Cholelithiasis [Unknown]
  - Injection site induration [Unknown]
  - Injection site pain [Unknown]
  - Injection site mass [Unknown]
  - Product dose omission issue [Unknown]
  - Abdominal pain upper [Unknown]
  - Discomfort [Unknown]
  - Headache [Unknown]
  - Hyperhidrosis [Unknown]

NARRATIVE: CASE EVENT DATE: 20170424
